FAERS Safety Report 20405764 (Version 1)
Quarter: 2022Q1

REPORT INFORMATION
  Report Type: Spontaneous
  Country: US (occurrence: None)
  Receive Date: 20220126
  Receipt Date: 20220126
  Transmission Date: 20220423
  Serious: No
  Sender: FDA-Public Use
  Company Number: None

PATIENT

DRUGS (1)
  1. PREDNISONE [Suspect]
     Active Substance: PREDNISONE

REACTIONS (3)
  - Drug ineffective [None]
  - Product substitution issue [None]
  - Suspected product quality issue [None]

NARRATIVE: CASE EVENT DATE: 20211110
